FAERS Safety Report 4727601-5 (Version None)
Quarter: 2005Q3

REPORT INFORMATION
  Report Type: 
  Country: None (occurrence: None)
  Receive Date: 20050728
  Receipt Date: 20050718
  Transmission Date: 20060218
  Serious: Yes (Hospitalization)
  Sender: FDA-Public Use
  Company Number: FR-SANOFI-SYNTHELABO-A02200501909

PATIENT
  Age: 82 Year
  Sex: Male

DRUGS (16)
  1. PLAVIX [Suspect]
     Indication: DRUG USE FOR UNKNOWN INDICATION
     Route: 048
     Dates: start: 20020101, end: 20050522
  2. LAROXYL [Suspect]
     Indication: FACIAL NEURALGIA
     Route: 048
     Dates: start: 20050419, end: 20050522
  3. CEFUROXIME AXETIL [Suspect]
     Indication: BRONCHITIS
     Route: 048
     Dates: start: 20050429, end: 20050511
  4. KARDEGIC [Concomitant]
     Indication: DRUG USE FOR UNKNOWN INDICATION
     Route: 048
     Dates: start: 20040701
  5. LASIX [Concomitant]
     Indication: DRUG USE FOR UNKNOWN INDICATION
     Dosage: 40 MG
     Route: 065
     Dates: start: 20040101
  6. ELAVIL [Concomitant]
     Indication: FACIAL NEURALGIA
     Dosage: UNK
     Route: 048
     Dates: start: 20050401, end: 20050418
  7. NITRODERM [Concomitant]
     Indication: DRUG USE FOR UNKNOWN INDICATION
     Route: 062
  8. SURBRONC [Concomitant]
     Indication: DRUG USE FOR UNKNOWN INDICATION
     Dosage: UNK
     Route: 065
     Dates: start: 20050422
  9. SILOMAT [Concomitant]
     Indication: DRUG USE FOR UNKNOWN INDICATION
     Dosage: UNK
     Route: 065
     Dates: start: 20050422
  10. VENTOLIN [Concomitant]
     Indication: DRUG USE FOR UNKNOWN INDICATION
     Dosage: UNK
     Route: 055
     Dates: start: 20050429
  11. QVAR 40 [Concomitant]
     Indication: DRUG USE FOR UNKNOWN INDICATION
     Dosage: UNK
     Route: 055
     Dates: start: 20050510
  12. PULMICORT [Concomitant]
     Indication: DRUG USE FOR UNKNOWN INDICATION
     Dosage: UNK
     Route: 055
  13. CHIBRO-CADRON [Concomitant]
     Indication: DRUG USE FOR UNKNOWN INDICATION
     Dosage: UNK
     Route: 047
  14. ERYTHROMYCIN [Concomitant]
     Indication: BRONCHITIS
     Dosage: UNK
     Route: 065
     Dates: start: 20050329, end: 20050415
  15. CIFLOX [Concomitant]
     Indication: BRONCHITIS
     Dosage: UNK
     Route: 065
     Dates: start: 20050329, end: 20050415
  16. ACETAMINOPHEN [Concomitant]
     Indication: DRUG USE FOR UNKNOWN INDICATION
     Route: 065
     Dates: start: 20050401, end: 20050501

REACTIONS (6)
  - BRONCHITIS [None]
  - CARDIAC FAILURE [None]
  - CONDITION AGGRAVATED [None]
  - HALLUCINATIONS, MIXED [None]
  - HEPATIC FAILURE [None]
  - HEPATOMEGALY [None]
